FAERS Safety Report 4583623-9 (Version None)
Quarter: 2005Q1

REPORT INFORMATION
  Report Type: 
  Country: None (occurrence: None)
  Receive Date: 20050125
  Receipt Date: 20041008
  Transmission Date: 20050727
  Serious: No
  Sender: FDA-Public Use
  Company Number: USA041080664

PATIENT
  Age: 86 Year
  Sex: Female

DRUGS (6)
  1. FORTEO [Suspect]
     Indication: OSTEOPOROSIS
     Dates: start: 20040601
  2. DILTIAZEM [Concomitant]
  3. FUROSEMIDE [Concomitant]
  4. MULTI-VITAMIN [Concomitant]
  5. CALCIUM GLUCONATE [Concomitant]
  6. LORAZEPAM [Concomitant]

REACTIONS (3)
  - CHEILITIS [None]
  - GLOSSODYNIA [None]
  - SWELLING FACE [None]
